FAERS Safety Report 20619446 (Version 2)
Quarter: 2022Q2

REPORT INFORMATION
  Report Type: Spontaneous
  Country: IN (occurrence: IN)
  Receive Date: 20220322
  Receipt Date: 20220420
  Transmission Date: 20220721
  Serious: Yes (Other)
  Sender: FDA-Public Use
  Company Number: IN-LUPIN PHARMACEUTICALS INC.-2022-03870

PATIENT
  Age: 27 Year
  Sex: Female

DRUGS (9)
  1. MEMANTINE [Suspect]
     Active Substance: MEMANTINE
     Indication: Disturbance in attention
     Dosage: UNK
     Route: 048
  2. MEMANTINE [Suspect]
     Active Substance: MEMANTINE
     Indication: Memory impairment
     Dosage: UNK UNK, QD
     Route: 048
  3. AGOMELATINE [Suspect]
     Active Substance: AGOMELATINE
     Indication: Disturbance in attention
     Dosage: UNK
     Route: 048
  4. AGOMELATINE [Suspect]
     Active Substance: AGOMELATINE
     Indication: Memory impairment
  5. THIAMINE [Suspect]
     Active Substance: THIAMINE
     Indication: Vitamin supplementation
     Dosage: 500 MILLIGRAM, BID
     Route: 042
  6. THIAMINE [Suspect]
     Active Substance: THIAMINE
     Indication: Wernicke^s encephalopathy
     Dosage: 200 MILLIGRAM, QD
     Route: 048
  7. THIAMINE [Suspect]
     Active Substance: THIAMINE
     Dosage: 100 MILLIGRAM, BID
     Route: 048
  8. PROGESTERONE [Suspect]
     Active Substance: PROGESTERONE
     Indication: Supplementation therapy
     Dosage: UNK
     Route: 065
  9. PIRACETAM [Suspect]
     Active Substance: PIRACETAM
     Indication: Product used for unknown indication
     Dosage: UNK UNK, TID
     Route: 048

REACTIONS (3)
  - Exposure during pregnancy [Unknown]
  - Premature delivery [Unknown]
  - Maternal exposure during breast feeding [Unknown]
